FAERS Safety Report 7150445-4 (Version None)
Quarter: 2010Q4

REPORT INFORMATION
  Report Type: 
  Country: None (occurrence: None)
  Receive Date: 20101210
  Receipt Date: 20101130
  Transmission Date: 20110411
  Serious: Yes (Hospitalization, Other)
  Sender: FDA-Public Use
  Company Number: PHFR2010GB04929

PATIENT
  Sex: Female
  Weight: 88 kg

DRUGS (5)
  1. TEGRETOL [Suspect]
     Indication: EPILEPSY
     Dosage: UNK
  2. TEGRETOL-XR [Suspect]
     Indication: EPILEPSY
  3. TEGRETOL [Suspect]
     Indication: EPILEPSY
     Dosage: 100MG DAILY
     Route: 048
     Dates: start: 20070401
  4. TEGRETOL [Suspect]
     Indication: EPILEPSY
     Dosage: 400MG DAILY
     Route: 048
     Dates: start: 20020501
  5. PRED FORTE [Concomitant]
     Indication: CORNEAL TRANSPLANT
     Dosage: 6 DROPS DAILY

REACTIONS (6)
  - AMNESIA [None]
  - CORNEAL TRANSPLANT [None]
  - EPILEPSY [None]
  - FACE INJURY [None]
  - GRAND MAL CONVULSION [None]
  - IMPAIRED DRIVING ABILITY [None]
